FAERS Safety Report 8494519-4 (Version None)
Quarter: 2012Q2

REPORT INFORMATION
  Report Type: 
  Country: None (occurrence: None)
  Receive Date: 20120405
  Receipt Date: 20081105
  Transmission Date: 20120825
  Serious: Yes (Hospitalization)
  Sender: FDA-Public Use
  Company Number: PHEH2008US09594

PATIENT
  Age: 66 Year
  Sex: Female
  Weight: 65.8 kg

DRUGS (20)
  1. PROZAC [Concomitant]
  2. OXYCODONE HCL [Concomitant]
  3. CALCIUM WITH VITAMIN D (CALCIUM PHOSPHATE, CALCIUM SODIUM LACTATE, ERG [Concomitant]
  4. POTASSIUM CHLORIDE [Concomitant]
  5. BENICAR [Concomitant]
  6. CLONIDINE [Concomitant]
  7. PROBENECID [Concomitant]
  8. HYDROXYUREA [Concomitant]
  9. PLAQUENIL [Concomitant]
  10. FORTEO [Concomitant]
  11. ALEVE /00256202/ (NAPROXEN SODIUM) [Concomitant]
  12. LASIX [Concomitant]
  13. LEVOTHYROXINE SODIUM [Concomitant]
  14. ASPIRIN [Concomitant]
  15. RECLAST [Suspect]
     Indication: OSTEOPOROSIS
     Dosage: 5 MG, ONCE/SINGLE, INTRAVENOUS
     Route: 042
     Dates: start: 20081016, end: 20081016
  16. MS CONTIN [Concomitant]
  17. ALBUTEROL [Concomitant]
  18. ADVAIR HFA [Concomitant]
  19. NEXIUM [Concomitant]
  20. LIDODERM [Concomitant]

REACTIONS (10)
  - DEHYDRATION [None]
  - PAIN [None]
  - ASTHENIA [None]
  - ARTHRALGIA [None]
  - MYALGIA [None]
  - MOBILITY DECREASED [None]
  - NAUSEA [None]
  - DYSPNOEA [None]
  - HEADACHE [None]
  - PYREXIA [None]
